FAERS Safety Report 11746113 (Version 1)
Quarter: 2015Q4

REPORT INFORMATION
  Report Type: Report from Study
  Country: US (occurrence: US)
  Receive Date: 20151117
  Receipt Date: 20151117
  Transmission Date: 20160304
  Serious: Yes (Other)
  Sender: FDA-Public Use
  Company Number: US-BIOGENIDEC-2015BI151107

PATIENT
  Age: 38 Year
  Sex: Female
  Weight: 96 kg

DRUGS (4)
  1. TECFIDERA [Suspect]
     Active Substance: DIMETHYL FUMARATE
     Indication: RELAPSING-REMITTING MULTIPLE SCLEROSIS
     Route: 048
     Dates: start: 20140408, end: 20141231
  2. HYDROCHLOROTHIAZIDE. [Concomitant]
     Active Substance: HYDROCHLOROTHIAZIDE
     Route: 048
  3. TECFIDERA [Suspect]
     Active Substance: DIMETHYL FUMARATE
     Indication: RELAPSING-REMITTING MULTIPLE SCLEROSIS
     Dates: start: 201402
  4. LOSARTIN [Concomitant]
     Active Substance: LOSARTAN
     Route: 048

REACTIONS (4)
  - Flushing [Unknown]
  - Lymphocyte count decreased [Unknown]
  - CD8 lymphocytes decreased [Unknown]
  - CD4 lymphocytes decreased [Unknown]
